FAERS Safety Report 14258772 (Version 1)
Quarter: 2017Q4

REPORT INFORMATION
  Report Type: Spontaneous
  Country: US (occurrence: US)
  Receive Date: 20171206
  Receipt Date: 20171206
  Transmission Date: 20180321
  Serious: No
  Sender: FDA-Public Use
  Company Number: None

PATIENT

DRUGS (2)
  1. TRETINOIN. [Suspect]
     Active Substance: TRETINOIN
  2. TRETINOIN. [Suspect]
     Active Substance: TRETINOIN

REACTIONS (3)
  - Therapy cessation [None]
  - Therapy change [None]
  - Drug ineffective [None]
